FAERS Safety Report 8477609-1 (Version None)
Quarter: 2012Q2

REPORT INFORMATION
  Report Type: 
  Country: None (occurrence: None)
  Receive Date: 20120626
  Receipt Date: 20120626
  Transmission Date: 20120825
  Serious: No
  Sender: FDA-Public Use
  Company Number: None

PATIENT

DRUGS (1)
  1. DIPHENHYDRAMINE [Suspect]
     Dosage: LIQUID CHILDREN'S ANTIHISTAMINE, 4 FL. OZ. CHERRY FLAVOR

REACTIONS (2)
  - PRODUCT LABEL CONFUSION [None]
  - MEDICATION ERROR [None]
